FAERS Safety Report 9124028 (Version 5)
Quarter: 2013Q4

REPORT INFORMATION
  Report Type: Spontaneous
  Country: AU (occurrence: AU)
  Receive Date: 20130116
  Receipt Date: 20131007
  Transmission Date: 20140711
  Serious: Yes (Death, Disabling)
  Sender: FDA-Public Use
  Company Number: AU-AMGEN-AUSSP2013001093

PATIENT
  Age: 70 Year
  Sex: Male

DRUGS (4)
  1. XGEVA [Suspect]
     Indication: BONE CANCER METASTATIC
     Dosage: 120 MG, QMO
     Route: 058
     Dates: start: 20121212, end: 20130209
  2. ZOLADEX                            /00732101/ [Concomitant]
  3. TARGIN [Concomitant]
  4. OXYNORM [Concomitant]

REACTIONS (7)
  - Death [Fatal]
  - Decreased appetite [Not Recovered/Not Resolved]
  - Feeling cold [Recovered/Resolved]
  - Fatigue [Not Recovered/Not Resolved]
  - Hot flush [Recovered/Resolved]
  - Pain in extremity [Unknown]
  - Prostatic specific antigen increased [Unknown]
